FAERS Safety Report 6539213-1 (Version None)
Quarter: 2010Q1

REPORT INFORMATION
  Report Type: 
  Country: None (occurrence: None)
  Receive Date: 20100115
  Receipt Date: 20100105
  Transmission Date: 20100710
  Serious: Yes (Other)
  Sender: FDA-Public Use
  Company Number: NO-ELI_LILLY_AND_COMPANY-NO201001000376

PATIENT
  Sex: Female

DRUGS (1)
  1. ZYPADHERA [Suspect]
     Indication: SCHIZOPHRENIA
     Dosage: 210 MG, OTHER
     Route: 030
     Dates: start: 20091228

REACTIONS (2)
  - FATIGUE [None]
  - SEDATION [None]
